FAERS Safety Report 6609273-8 (Version None)
Quarter: 2010Q1

REPORT INFORMATION
  Report Type: 
  Country: None (occurrence: None)
  Receive Date: 20100224
  Receipt Date: 20100209
  Transmission Date: 20100710
  Serious: Yes (Death, Hospitalization)
  Sender: FDA-Public Use
  Company Number: 2010000008

PATIENT
  Age: 48 Year
  Sex: Female

DRUGS (13)
  1. ERLOTINIB         (ERLOTINIB) (TABLET) [Suspect]
     Indication: NON-SMALL CELL LUNG CANCER
     Dosage: (150 MG, QD), ORAL
     Route: 048
     Dates: start: 20090729, end: 20091024
  2. ZOSYN [Concomitant]
  3. LOVENOX [Concomitant]
  4. FLUTICASONE PROPIONATE [Concomitant]
  5. COMBIVENT [Concomitant]
  6. OXYCONTIN [Concomitant]
  7. OXYCODONE HCL [Concomitant]
  8. DILAUDID [Concomitant]
  9. ATIVAN [Concomitant]
  10. COLACE (DOCUSATE SODIUM) [Concomitant]
  11. SENNA (SENNA) [Concomitant]
  12. POLYETHYLENE GLYCOL [Concomitant]
  13. NICOTINE [Concomitant]

REACTIONS (25)
  - ANAEMIA [None]
  - BRADYCARDIA [None]
  - BRONCHOSCOPY ABNORMAL [None]
  - CANDIDIASIS [None]
  - CARDIAC ARREST [None]
  - CARDIOGENIC SHOCK [None]
  - CARDIOMYOPATHY [None]
  - DEEP VEIN THROMBOSIS [None]
  - DYSPNOEA [None]
  - DYSPNOEA EXERTIONAL [None]
  - ENTEROCOCCAL INFECTION [None]
  - LEFT VENTRICULAR DYSFUNCTION [None]
  - LOCAL SWELLING [None]
  - MALIGNANT PLEURAL EFFUSION [None]
  - MULTI-ORGAN FAILURE [None]
  - NODAL ARRHYTHMIA [None]
  - NODAL RHYTHM [None]
  - PLEURAL EFFUSION [None]
  - PNEUMONIA [None]
  - REFUSAL OF TREATMENT BY PATIENT [None]
  - RESPIRATORY FAILURE [None]
  - SEPSIS [None]
  - SPUTUM CULTURE POSITIVE [None]
  - TACHYCARDIA [None]
  - UNRESPONSIVE TO STIMULI [None]
